FAERS Safety Report 11312838 (Version 1)
Quarter: 2015Q3

REPORT INFORMATION
  Report Type: Spontaneous
  Country: US (occurrence: US)
  Receive Date: 20150727
  Receipt Date: 20150727
  Transmission Date: 20151125
  Serious: No
  Sender: FDA-Public Use
  Company Number: US-ABBVIE-14P-163-1289378-00

PATIENT
  Sex: Female

DRUGS (1)
  1. SYNTHROID [Suspect]
     Active Substance: LEVOTHYROXINE SODIUM
     Indication: PRODUCT USED FOR UNKNOWN INDICATION
     Route: 048
     Dates: start: 201407, end: 201409

REACTIONS (7)
  - Dizziness [Recovered/Resolved]
  - Erythema [Recovered/Resolved with Sequelae]
  - Nausea [Recovered/Resolved]
  - Activities of daily living impaired [Unknown]
  - Dyspepsia [Recovered/Resolved]
  - Malaise [Unknown]
  - Hot flush [Recovered/Resolved]

NARRATIVE: CASE EVENT DATE: 201407
